FAERS Safety Report 10437560 (Version 2)
Quarter: 2016Q2

REPORT INFORMATION
  Report Type: Spontaneous
  Country: US (occurrence: US)
  Receive Date: 20140908
  Receipt Date: 20160429
  Transmission Date: 20160815
  Serious: No
  Sender: FDA-Public Use
  Company Number: US-BRISTOL-MYERS SQUIBB COMPANY-20417333

PATIENT
  Age: 15 Year
  Sex: Female

DRUGS (1)
  1. ABILIFY [Suspect]
     Active Substance: ARIPIPRAZOLE
     Indication: BIPOLAR DISORDER
     Dosage: PRESCRIBED DOSE WAS 10MG/DAY
     Route: 065

REACTIONS (4)
  - Dizziness [Unknown]
  - Incorrect dose administered [Unknown]
  - Syncope [Unknown]
  - Muscle rigidity [Unknown]
